FAERS Safety Report 7487616-3 (Version None)
Quarter: 2011Q2

REPORT INFORMATION
  Report Type: 
  Country: None (occurrence: None)
  Receive Date: 20110518
  Receipt Date: 20110502
  Transmission Date: 20111010
  Serious: No
  Sender: FDA-Public Use
  Company Number: US-B.I. PHARMACEUTICALS,INC./RIDGEFIELD-2011-BP-12227BP

PATIENT
  Sex: Male

DRUGS (9)
  1. LIPITOR [Concomitant]
     Indication: BLOOD CHOLESTEROL INCREASED
  2. VERAPAMIL [Concomitant]
     Indication: HYPERTENSION
  3. TEKTURNA [Concomitant]
     Indication: ATRIAL FIBRILLATION
  4. ACTOS [Concomitant]
     Indication: DIABETES MELLITUS
  5. M.V.I. [Concomitant]
     Indication: SUPPLEMENTATION THERAPY
  6. COREG SR [Concomitant]
     Indication: HYPERTENSION
  7. JANUVIA [Concomitant]
     Indication: DIABETES MELLITUS
  8. DIGOXIN [Concomitant]
     Indication: ATRIAL FIBRILLATION
  9. PRADAXA [Suspect]
     Indication: ATRIAL FIBRILLATION
     Dosage: 300 MG
     Route: 048
     Dates: start: 20101201

REACTIONS (1)
  - SKIN DISCOLOURATION [None]
